FAERS Safety Report 23207333 (Version 1)
Quarter: 2023Q4

REPORT INFORMATION
  Report Type: Spontaneous
  Country: US (occurrence: US)
  Receive Date: 20231120
  Receipt Date: 20231120
  Transmission Date: 20240110
  Serious: Yes (Life-Threatening, Hospitalization, Other)
  Sender: FDA-Public Use
  Company Number: US-BRACCO-2023US00462

PATIENT
  Age: 82 Year
  Sex: Male

DRUGS (17)
  1. LUMASON [Suspect]
     Active Substance: SULFUR HEXAFLUORIDE
     Indication: Echocardiogram
     Dosage: 2 ML GIVEN DILUTED IN 10 ML
     Route: 042
     Dates: start: 20230203, end: 20230203
  2. LUMASON [Suspect]
     Active Substance: SULFUR HEXAFLUORIDE
     Indication: Echocardiogram
     Dosage: 2 ML GIVEN DILUTED IN 10 ML
     Route: 042
     Dates: start: 20230203, end: 20230203
  3. LUMASON [Suspect]
     Active Substance: SULFUR HEXAFLUORIDE
     Indication: Echocardiogram
     Dosage: 2 ML GIVEN DILUTED IN 10 ML
     Route: 042
     Dates: start: 20230203, end: 20230203
  4. LUMASON [Suspect]
     Active Substance: SULFUR HEXAFLUORIDE
     Dosage: 2 ML GIVEN DILUTED IN 10 ML
     Route: 042
     Dates: start: 20230203, end: 20230203
  5. LUMASON [Suspect]
     Active Substance: SULFUR HEXAFLUORIDE
     Dosage: 2 ML GIVEN DILUTED IN 10 ML
     Route: 042
     Dates: start: 20230203, end: 20230203
  6. LUMASON [Suspect]
     Active Substance: SULFUR HEXAFLUORIDE
     Dosage: 2 ML GIVEN DILUTED IN 10 ML
     Route: 042
     Dates: start: 20230203, end: 20230203
  7. SODIUM CHLORIDE [Concomitant]
     Active Substance: SODIUM CHLORIDE
     Dosage: 2 ML LUMASON IN 10 ML
     Route: 042
     Dates: start: 20230203, end: 20230203
  8. ASPIRIN [Concomitant]
     Active Substance: ASPIRIN
  9. ATORVASTATIN [Concomitant]
     Active Substance: ATORVASTATIN
  10. LEVOTHYROXINE [Concomitant]
     Active Substance: LEVOTHYROXINE
  11. PREDNISONE [Concomitant]
     Active Substance: PREDNISONE
  12. POTASSIUM [Concomitant]
     Active Substance: POTASSIUM
  13. TICAGRELOR [Concomitant]
     Active Substance: TICAGRELOR
  14. AMOXICILLIN [Concomitant]
     Active Substance: AMOXICILLIN
  15. METOPROLOL [Concomitant]
     Active Substance: METOPROLOL
  16. FLUDROCORTISONE [Concomitant]
     Active Substance: FLUDROCORTISONE
  17. HYDROCHLOROTHIAZIDE [Concomitant]
     Active Substance: HYDROCHLOROTHIAZIDE

REACTIONS (1)
  - Anaphylactic reaction [Recovered/Resolved]

NARRATIVE: CASE EVENT DATE: 20230203
